FAERS Safety Report 4895825-2 (Version None)
Quarter: 2005Q4

REPORT INFORMATION
  Report Type: 
  Country: None (occurrence: None)
  Receive Date: 20051220
  Receipt Date: 20050826
  Transmission Date: 20060501
  Serious: Yes (Other)
  Sender: FDA-Public Use
  Company Number: PHEH2005US09578

PATIENT
  Age: 59 Year
  Sex: Female

DRUGS (7)
  1. AREDIA [Suspect]
     Indication: METASTASES TO BONE
     Dosage: QMO, INTRAVENOUS
     Route: 042
     Dates: start: 19991201, end: 20050201
  2. ZOMETA [Suspect]
     Indication: METASTASES TO BONE
     Dosage: QMO
     Dates: start: 20050201
  3. KEPPRA [Suspect]
     Indication: SIMPLE PARTIAL SEIZURES
     Dosage: 1500 MG, BID; SEE IMAGE
     Dates: start: 20040101, end: 20050401
  4. KEPPRA [Suspect]
     Indication: SIMPLE PARTIAL SEIZURES
     Dosage: 1500 MG, BID; SEE IMAGE
     Dates: start: 20050401
  5. TEGRETOL [Concomitant]
  6. TRASTUZUMAB (TRASTUZUMAB) [Concomitant]
  7. METOPROLOL (METOPROLOL) [Concomitant]

REACTIONS (9)
  - BRAIN TUMOUR OPERATION [None]
  - HEMIPLEGIA [None]
  - HYPOAESTHESIA [None]
  - INFLUENZA LIKE ILLNESS [None]
  - METASTASES TO CENTRAL NERVOUS SYSTEM [None]
  - MYALGIA [None]
  - PYREXIA [None]
  - RADIOTHERAPY TO BRAIN [None]
  - SIMPLE PARTIAL SEIZURES [None]
